FAERS Safety Report 9616336 (Version 1)
Quarter: 2013Q4

REPORT INFORMATION
  Report Type: Spontaneous
  Country: US (occurrence: US)
  Receive Date: 20131011
  Receipt Date: 20131011
  Transmission Date: 20140711
  Serious: No
  Sender: FDA-Public Use
  Company Number: US-PURDUE-USA-2013-0099558

PATIENT
  Sex: Female

DRUGS (1)
  1. BUTRANS [Suspect]
     Indication: PRODUCT USED FOR UNKNOWN INDICATION
     Dosage: 10 MCG/HR (TWO 5MCG/HR PATCHES)
     Route: 062

REACTIONS (3)
  - Application site burn [Unknown]
  - Extra dose administered [Not Recovered/Not Resolved]
  - Application site rash [Unknown]
